FAERS Safety Report 8927990 (Version 1)
Quarter: 2012Q4

REPORT INFORMATION
  Report Type: Spontaneous
  Country: US (occurrence: None)
  Receive Date: 20121126
  Receipt Date: 20121126
  Transmission Date: 20130627
  Serious: Yes (Other)
  Sender: FDA-Public Use
  Company Number: None

PATIENT
  Age: 68 Year
  Sex: Male
  Weight: 74.84 kg

DRUGS (1)
  1. ESCITALOPRAM [Suspect]
     Indication: MAJOR DEPRESSIVE DISORDER NOS
     Route: 048
     Dates: start: 20120915, end: 20121015

REACTIONS (4)
  - Restlessness [None]
  - Irritability [None]
  - Depression [None]
  - Product substitution issue [None]
